APPROVED DRUG PRODUCT: STALEVO 50
Active Ingredient: CARBIDOPA; ENTACAPONE; LEVODOPA
Strength: 12.5MG;200MG;50MG
Dosage Form/Route: TABLET;ORAL
Application: N021485 | Product #001 | TE Code: AB
Applicant: ORION PHARMA
Approved: Jun 11, 2003 | RLD: Yes | RS: Yes | Type: RX